FAERS Safety Report 21558132 (Version 1)
Quarter: 2022Q4

REPORT INFORMATION
  Report Type: Spontaneous
  Country: US (occurrence: US)
  Receive Date: 20221107
  Receipt Date: 20221107
  Transmission Date: 20230113
  Serious: No
  Sender: FDA-Public Use
  Company Number: US-GLAXOSMITHKLINE-US2022AMR157111

PATIENT
  Sex: Female

DRUGS (1)
  1. ZEJULA [Suspect]
     Active Substance: NIRAPARIB
     Indication: Ovarian cancer
     Dosage: 200 MG, QD
     Route: 048
     Dates: start: 20221007

REACTIONS (9)
  - Dysstasia [Unknown]
  - Fall [Unknown]
  - Appetite disorder [Unknown]
  - Feeling abnormal [Unknown]
  - Haematocrit decreased [Unknown]
  - Dehydration [Unknown]
  - Peripheral swelling [Unknown]
  - Illness [Unknown]
  - Decreased activity [Unknown]

NARRATIVE: CASE EVENT DATE: 20221001
